FAERS Safety Report 18435863 (Version 1)
Quarter: 2020Q4

REPORT INFORMATION
  Report Type: Spontaneous
  Country: US (occurrence: US)
  Receive Date: 20201028
  Receipt Date: 20201028
  Transmission Date: 20210114
  Serious: Yes (Other)
  Sender: FDA-Public Use
  Company Number: US-SA-2020SA302030

PATIENT

DRUGS (2)
  1. NAPROXEN. [Concomitant]
     Active Substance: NAPROXEN
  2. AUBAGIO [Suspect]
     Active Substance: TERIFLUNOMIDE
     Indication: MULTIPLE SCLEROSIS
     Dosage: 7 MG, QD
     Route: 048
     Dates: start: 20200923

REACTIONS (3)
  - Arthralgia [Unknown]
  - Contusion [Unknown]
  - Haemorrhage [Unknown]

NARRATIVE: CASE EVENT DATE: 2020
